FAERS Safety Report 26143466 (Version 2)
Quarter: 2025Q4

REPORT INFORMATION
  Report Type: Spontaneous
  Country: TW (occurrence: TW)
  Receive Date: 20251211
  Receipt Date: 20251231
  Transmission Date: 20260117
  Serious: Yes (Other)
  Sender: SANOFI AVENTIS
  Company Number: None

PATIENT
  Age: 64 Year
  Sex: Male

DRUGS (6)
  1. ETHAMBUTOL [Suspect]
     Active Substance: ETHAMBUTOL HYDROCHLORIDE
     Indication: Pulmonary tuberculosis
     Dosage: UNK
     Dates: start: 200912
  2. ISONIAZID [Suspect]
     Active Substance: ISONIAZID
     Indication: Pulmonary tuberculosis
     Dosage: UNK
     Dates: start: 200912
  3. ISONIAZID [Suspect]
     Active Substance: ISONIAZID
     Dosage: UNK
     Dates: start: 2010
  4. PYRAZINAMIDE [Suspect]
     Active Substance: PYRAZINAMIDE
     Indication: Pulmonary tuberculosis
     Dosage: UNK
     Dates: start: 200912
  5. RIFAMPIN [Suspect]
     Active Substance: RIFAMPIN
     Indication: Pulmonary tuberculosis
     Dosage: UNK
     Dates: start: 200912
  6. RIFAMPIN [Suspect]
     Active Substance: RIFAMPIN
     Dosage: UNK
     Dates: start: 2010

REACTIONS (3)
  - Gouty tophus [Recovering/Resolving]
  - Nodule [Recovering/Resolving]
  - Gout [Recovering/Resolving]
